FAERS Safety Report 7335869-4 (Version None)
Quarter: 2011Q1

REPORT INFORMATION
  Report Type: 
  Country: None (occurrence: None)
  Receive Date: 20110301
  Receipt Date: 20110301
  Transmission Date: 20110831
  Serious: No
  Sender: FDA-Public Use
  Company Number: None

PATIENT
  Age: 77 Year
  Sex: Male
  Weight: 69.7 kg

DRUGS (1)
  1. LIDOCAINE [Suspect]
     Indication: BRONCHOSCOPY
     Dosage: 15 ML ONCE PO
     Route: 048
     Dates: start: 20101015, end: 20101015

REACTIONS (3)
  - METHAEMOGLOBINAEMIA [None]
  - CYANOSIS [None]
  - DYSPNOEA [None]
